FAERS Safety Report 9991389 (Version 1)
Quarter: 2014Q1

REPORT INFORMATION
  Report Type: Report from Study
  Country: JP (occurrence: JP)
  Receive Date: 20140310
  Receipt Date: 20140310
  Transmission Date: 20141002
  Serious: Yes (Hospitalization)
  Sender: FDA-Public Use
  Company Number: JP-009507513-1403JPN001872

PATIENT
  Sex: Male
  Weight: 76 kg

DRUGS (19)
  1. CANCIDAS FOR INTRAVENOUS DRIP INFUSION 50MG [Suspect]
     Indication: FEBRILE NEUTROPENIA
     Dosage: 50 MG, QD
     Route: 041
     Dates: start: 20131210, end: 20131213
  2. CANCIDAS FOR INTRAVENOUS DRIP INFUSION 70MG [Suspect]
     Indication: FEBRILE NEUTROPENIA
     Dosage: 70 MG, QD
     Route: 041
     Dates: start: 20131209, end: 20131209
  3. FUNGUARD [Concomitant]
     Indication: INFECTION PROPHYLAXIS
     Dosage: 50 MG, QD
     Route: 051
     Dates: start: 20130919, end: 20131210
  4. MEROPEN [Concomitant]
     Indication: FEBRILE NEUTROPENIA
     Dosage: 1 G, TID
     Route: 051
     Dates: start: 20131126, end: 20131209
  5. FINIBAX [Concomitant]
     Indication: FEBRILE NEUTROPENIA
     Dosage: 1 G, TID
     Route: 051
     Dates: start: 20131210
  6. TEICOPLANIN [Concomitant]
     Indication: FEBRILE NEUTROPENIA
     Dosage: 800 MG, QD
     Route: 051
     Dates: start: 20131203
  7. SANDIMMUN [Concomitant]
     Indication: PROPHYLAXIS
     Dosage: 300 MG, QD
     Route: 051
     Dates: start: 20131127
  8. GRAN [Concomitant]
     Indication: NEUTROPENIA
     Dosage: 450 MICROGRAM, QD
     Route: 051
     Dates: start: 20131129, end: 20131213
  9. GASTER (FAMOTIDINE) [Concomitant]
     Indication: GASTRIC ULCER
     Dosage: 20 MG, QD
     Route: 051
     Dates: start: 20131127
  10. MORPHINE [Concomitant]
     Indication: CANCER PAIN
     Dosage: 10 MG, QD
     Route: 051
     Dates: start: 20131208
  11. MAGNESIUM SULFATE [Concomitant]
     Indication: HYPOMAGNESAEMIA
     Dosage: 20 ML, DIVIDED DOSE FREQUENCY UNKNOWN
     Route: 051
     Dates: start: 20131201
  12. POTASSIUM CHLORIDE [Concomitant]
     Indication: HYPOKALAEMIA
     Dosage: 20 ML, QD
     Route: 051
     Dates: start: 20131201
  13. VICCLOX [Concomitant]
     Indication: ANTIVIRAL PROPHYLAXIS
     Dosage: 250 MG, TID
     Route: 051
     Dates: start: 20131207
  14. LASIX (FUROSEMIDE) [Concomitant]
     Indication: OEDEMA
     Dosage: 20 MG, QD
     Route: 051
     Dates: start: 20131209
  15. SOLU-CORTEF [Concomitant]
     Indication: URTICARIA
     Dosage: 100 MG, DIVIDED DOSE FREQUENCY UNKNOWN
     Route: 051
     Dates: start: 20131201
  16. ATARAX P [Concomitant]
     Indication: URTICARIA
     Dosage: 25 MG, DIVIDED DOSE FREQUENCY UNKNOWN
     Route: 051
     Dates: start: 20131201
  17. MINOCYCLINE [Concomitant]
     Indication: FEBRILE NEUTROPENIA
     Dosage: 100 MG, BID
     Route: 051
     Dates: start: 20131212
  18. VENILON [Concomitant]
     Indication: FEBRILE NEUTROPENIA
     Dosage: 5 G, QD
     Route: 051
     Dates: start: 20131213, end: 20131214
  19. MICAFUNGIN SODIUM [Concomitant]
     Indication: FEBRILE NEUTROPENIA
     Dosage: 50 MG, DIVIDED DOSE FREQUENCY UNKNOWN
     Route: 041
     Dates: start: 20130919, end: 20131210

REACTIONS (2)
  - Venoocclusive disease [Recovered/Resolved]
  - Drug ineffective [Unknown]
